FAERS Safety Report 5069883-9 (Version None)
Quarter: 2006Q3

REPORT INFORMATION
  Report Type: 
  Country: None (occurrence: None)
  Receive Date: 20060803
  Receipt Date: 20060623
  Transmission Date: 20061208
  Serious: Yes (Hospitalization, Other)
  Sender: FDA-Public Use
  Company Number: US-BRISTOL-MYERS SQUIBB COMPANY-13422530

PATIENT
  Age: 57 Year
  Sex: Male
  Weight: 58 kg

DRUGS (11)
  1. ERBITUX [Suspect]
     Indication: NEOPLASM MALIGNANT
     Route: 042
     Dates: start: 20060509, end: 20060509
  2. MORPHINE SULFATE [Concomitant]
     Dosage: 15MG/ML 1-2 TSP Q 3-4H PRN
  3. NEXIUM [Concomitant]
  4. THIAMINE [Concomitant]
  5. LORTAB [Concomitant]
  6. DURAGESIC-100 [Concomitant]
  7. COLACE [Concomitant]
  8. DUONEB [Concomitant]
  9. ACETAMINOPHEN AND HYDROCODONE BITARTRATE [Concomitant]
     Indication: NEOPLASM MALIGNANT
  10. FOLIC ACID [Concomitant]
  11. ANUSOL [Concomitant]
     Route: 061

REACTIONS (7)
  - ASTHENIA [None]
  - DIZZINESS [None]
  - MICROCYTIC ANAEMIA [None]
  - NECK PAIN [None]
  - OESOPHAGITIS [None]
  - RECTAL HAEMORRHAGE [None]
  - SYNCOPE [None]
